FAERS Safety Report 14161015 (Version 1)
Quarter: 2017Q4

REPORT INFORMATION
  Report Type: Report from Study
  Country: US (occurrence: US)
  Receive Date: 20171106
  Receipt Date: 20171106
  Transmission Date: 20180321
  Serious: Yes (Other)
  Sender: FDA-Public Use
  Company Number: PHEH2017US034894

PATIENT
  Sex: Male

DRUGS (1)
  1. ZOMETA [Suspect]
     Active Substance: ZOLEDRONIC ACID
     Indication: OSTEOPOROSIS
     Dosage: UNK UNK, QMO
     Route: 065
     Dates: start: 201501

REACTIONS (4)
  - Product use in unapproved indication [Unknown]
  - Osteoporosis [Unknown]
  - Systemic mastocytosis [Not Recovered/Not Resolved]
  - Pain [Unknown]
